FAERS Safety Report 26193259 (Version 1)
Quarter: 2025Q4

REPORT INFORMATION
  Report Type: Spontaneous
  Country: US (occurrence: None)
  Receive Date: 20251223
  Receipt Date: 20251223
  Transmission Date: 20260119
  Serious: Yes (Other)
  Sender: FDA-CTU
  Company Number: None

PATIENT
  Age: 29 Year
  Sex: Female
  Weight: 57.6 kg

DRUGS (1)
  1. NADIDE [Suspect]
     Active Substance: NADIDE
     Indication: Mental fatigue
     Dosage: 0.1 ML 3X A WEEK SUBCUTANEOUS
     Route: 058
     Dates: start: 20251114, end: 20251207

REACTIONS (3)
  - Drug interaction [None]
  - Irritability [None]
  - Feeling abnormal [None]

NARRATIVE: CASE EVENT DATE: 20251207
